FAERS Safety Report 9325704 (Version 2)
Quarter: 2013Q3

REPORT INFORMATION
  Report Type: Report from Study
  Country: BR (occurrence: BR)
  Receive Date: 20130604
  Receipt Date: 20130701
  Transmission Date: 20140515
  Serious: No
  Sender: FDA-Public Use
  Company Number: PHHY2013BR055919

PATIENT
  Sex: Female

DRUGS (3)
  1. DIOVAN [Suspect]
     Indication: HYPERTENSION
     Dosage: 1 DF, (80 MG) IN THE MORNING
     Route: 048
     Dates: start: 1998
  2. PURAN T4 [Concomitant]
     Indication: HYPOTHYROIDISM
     Dosage: 1 DF, DAILY
     Route: 048
     Dates: start: 1997
  3. VENALOT [Concomitant]
     Indication: CARDIOVASCULAR DISORDER
     Dosage: 1 DF, (1 APPLICATION DAILY)
     Route: 061

REACTIONS (13)
  - Tooth fracture [Recovered/Resolved]
  - Dental caries [Recovered/Resolved]
  - Scab [Recovering/Resolving]
  - Stress [Not Recovered/Not Resolved]
  - Spinal pain [Recovering/Resolving]
  - Depressed mood [Not Recovered/Not Resolved]
  - Dysstasia [Recovered/Resolved]
  - Fall [Recovered/Resolved]
  - Wound [Recovered/Resolved]
  - Abdominal pain upper [Recovered/Resolved]
  - Insomnia [Not Recovered/Not Resolved]
  - Dizziness [Recovered/Resolved]
  - Nausea [Recovered/Resolved]
